FAERS Safety Report 9040938 (Version 1)
Quarter: 2013Q1

REPORT INFORMATION
  Report Type: Spontaneous
  Country: US (occurrence: None)
  Receive Date: 20130123
  Receipt Date: 20130123
  Transmission Date: 20140127
  Serious: Yes (Hospitalization)
  Sender: FDA-Public Use
  Company Number: None

PATIENT
  Sex: Male
  Weight: 23.2 kg

DRUGS (1)
  1. DACTINOMYCIN [Suspect]

REACTIONS (11)
  - Renal failure acute [None]
  - Hydronephrosis [None]
  - Ureteric obstruction [None]
  - Tumour lysis syndrome [None]
  - Blood uric acid abnormal [None]
  - Hypercalcaemia [None]
  - Hyperuricaemia [None]
  - Hyperphosphataemia [None]
  - Oliguria [None]
  - Respiratory disorder [None]
  - Procedural complication [None]
